FAERS Safety Report 5528068-X (Version None)
Quarter: 2007Q4

REPORT INFORMATION
  Report Type: 
  Country: None (occurrence: None)
  Receive Date: 20071126
  Receipt Date: 20071126
  Transmission Date: 20080405
  Serious: Yes (Other)
  Sender: FDA-Public Use
  Company Number: None

PATIENT
  Age: 62 Year
  Sex: Male
  Weight: 104.3273 kg

DRUGS (2)
  1. CHANTIX [Suspect]
     Indication: SMOKING CESSATION THERAPY
     Dosage: 1 PILL 2 TIMES A DAY
     Dates: start: 20070711, end: 20070724
  2. CHANTIX [Suspect]
     Dates: start: 20070725, end: 20070917

REACTIONS (8)
  - APATHY [None]
  - DEPRESSION [None]
  - DRUG WITHDRAWAL SYNDROME [None]
  - IMPAIRED WORK ABILITY [None]
  - INSOMNIA [None]
  - MOOD ALTERED [None]
  - RASH [None]
  - SOMNOLENCE [None]
